FAERS Safety Report 17970729 (Version 1)
Quarter: 2020Q3

REPORT INFORMATION
  Report Type: Spontaneous
  Country: KE (occurrence: KE)
  Receive Date: 20200702
  Receipt Date: 20200702
  Transmission Date: 20201103
  Serious: Yes (Other)
  Sender: FDA-Public Use
  Company Number: KE-ROCHE-2634103

PATIENT
  Age: 51 Year
  Sex: Female
  Weight: 55 kg

DRUGS (1)
  1. AVASTIN [Suspect]
     Active Substance: BEVACIZUMAB
     Indication: DIABETIC RETINOPATHY
     Route: 050
     Dates: start: 20200415, end: 20200415

REACTIONS (5)
  - Endophthalmitis [Recovered/Resolved with Sequelae]
  - Visual impairment [Unknown]
  - Discomfort [Unknown]
  - Pain [Unknown]
  - Vitreous floaters [Recovered/Resolved with Sequelae]

NARRATIVE: CASE EVENT DATE: 20200415
